FAERS Safety Report 5257808-2 (Version None)
Quarter: 2007Q1

REPORT INFORMATION
  Report Type: 
  Country: None (occurrence: None)
  Receive Date: 20061117
  Receipt Date: 20060508
  Transmission Date: 20070707
  Serious: Yes (Hospitalization)
  Sender: FDA-Public Use
  Company Number: US-JNJFOC-20060403440

PATIENT
  Age: 26 Year
  Sex: Female

DRUGS (1)
  1. LEVAQUIN [Suspect]
     Indication: PELVIC INFLAMMATORY DISEASE
     Dosage: 500 MG, 1 IN 1 DAY, ORAL
     Route: 048
     Dates: start: 20041123, end: 20041202

REACTIONS (2)
  - DRUG INEFFECTIVE [None]
  - PANCYTOPENIA [None]
